FAERS Safety Report 16048127 (Version 1)
Quarter: 2019Q1

REPORT INFORMATION
  Report Type: Report from Study
  Country: CA (occurrence: CA)
  Receive Date: 20190307
  Receipt Date: 20190307
  Transmission Date: 20190418
  Serious: Yes (Death, Other)
  Sender: FDA-Public Use
  Company Number: CA-BAYER-2019-046620

PATIENT
  Age: 52 Year
  Sex: Female

DRUGS (4)
  1. ASPIRIN. [Suspect]
     Active Substance: ASPIRIN
     Indication: ANTIPLATELET THERAPY
     Dosage: UNK
  2. ASPIRIN. [Interacting]
     Active Substance: ASPIRIN
     Indication: BASILAR ARTERY ANEURYSM
  3. CLOPIDOGREL [Interacting]
     Active Substance: CLOPIDOGREL BISULFATE
     Indication: ANTIPLATELET THERAPY
     Dosage: UNK
  4. CLOPIDOGREL [Interacting]
     Active Substance: CLOPIDOGREL BISULFATE
     Indication: BASILAR ARTERY ANEURYSM

REACTIONS (4)
  - Subarachnoid haemorrhage [Fatal]
  - Labelled drug-drug interaction medication error [None]
  - Product use in unapproved indication [None]
  - Off label use [None]
